FAERS Safety Report 18441381 (Version 2)
Quarter: 2020Q4

REPORT INFORMATION
  Report Type: Spontaneous
  Country: IT (occurrence: IT)
  Receive Date: 20201029
  Receipt Date: 20201208
  Transmission Date: 20210114
  Serious: Yes (Hospitalization)
  Sender: FDA-Public Use
  Company Number: IT-009507513-2010ITA010517

PATIENT
  Age: 87 Year
  Sex: Male

DRUGS (2)
  1. SIMVASTATIN. [Suspect]
     Active Substance: SIMVASTATIN
     Dosage: 1 DOSAGE FORM, QD, INTERACTING DRUGS.
     Route: 048
  2. COUMADIN [Interacting]
     Active Substance: WARFARIN SODIUM
     Dosage: 2.5 MILLIGRAM, QD, INTERACTING DRUGS.
     Route: 048
     Dates: start: 20201007, end: 20201013

REACTIONS (2)
  - Drug interaction [Recovering/Resolving]
  - International normalised ratio increased [Recovering/Resolving]

NARRATIVE: CASE EVENT DATE: 20201013
